FAERS Safety Report 12379941 (Version 1)
Quarter: 2016Q2

REPORT INFORMATION
  Report Type: Spontaneous
  Country: SG (occurrence: SG)
  Receive Date: 20160518
  Receipt Date: 20160518
  Transmission Date: 20160815
  Serious: Yes (Other)
  Sender: FDA-Public Use
  Company Number: SG-BAUSCH-BL-2016-011727

PATIENT
  Age: 50 Year
  Sex: Male

DRUGS (8)
  1. RIFAMPICIN [Suspect]
     Active Substance: RIFAMPIN
     Indication: CHORIORETINITIS
  2. ETHAMBUTOL [Suspect]
     Active Substance: ETHAMBUTOL HYDROCHLORIDE
     Indication: UVEITIS
     Route: 048
  3. PREDNISOLONE. [Suspect]
     Active Substance: PREDNISOLONE
     Indication: UVEITIS
     Route: 048
  4. PREDNISOLONE. [Suspect]
     Active Substance: PREDNISOLONE
     Indication: CHORIORETINITIS
  5. ISONIAZID. [Suspect]
     Active Substance: ISONIAZID
     Indication: UVEITIS
     Route: 048
  6. RIFAMPICIN [Suspect]
     Active Substance: RIFAMPIN
     Indication: UVEITIS
     Route: 048
  7. ISONIAZID. [Suspect]
     Active Substance: ISONIAZID
     Indication: CHORIORETINITIS
  8. ETHAMBUTOL [Suspect]
     Active Substance: ETHAMBUTOL HYDROCHLORIDE
     Indication: CHORIORETINITIS

REACTIONS (2)
  - Chorioretinitis [Recovered/Resolved]
  - Condition aggravated [Recovered/Resolved]
